FAERS Safety Report 4600186-X (Version None)
Quarter: 2005Q1

REPORT INFORMATION
  Report Type: 
  Country: None (occurrence: None)
  Receive Date: 20050307
  Receipt Date: 20050224
  Transmission Date: 20050727
  Serious: Yes (Death)
  Sender: FDA-Public Use
  Company Number: BR-ROCHE-396723

PATIENT
  Age: 72 Year
  Sex: Female

DRUGS (1)
  1. TORADOL [Suspect]
     Indication: SCIATICA
     Route: 065
     Dates: start: 20040915, end: 20040915

REACTIONS (2)
  - CHRONIC OBSTRUCTIVE AIRWAYS DISEASE EXACERBATED [None]
  - CHRONIC OBSTRUCTIVE PULMONARY DISEASE [None]
